FAERS Safety Report 20329064 (Version 1)
Quarter: 2022Q1

REPORT INFORMATION
  Report Type: Spontaneous
  Country: US (occurrence: US)
  Receive Date: 20220112
  Receipt Date: 20220112
  Transmission Date: 20220423
  Serious: No
  Sender: FDA-Public Use
  Company Number: US-INTRA-CELLULAR THERAPIES, INC.-2021ICT00414

PATIENT
  Age: 21 Year
  Sex: Female
  Weight: 86.168 kg

DRUGS (2)
  1. CAPLYTA [Suspect]
     Active Substance: LUMATEPERONE
     Indication: Affective disorder
     Dosage: 42 MG 1X/DAY
     Route: 048
     Dates: start: 20210626, end: 20210626
  2. CAPLYTA [Suspect]
     Active Substance: LUMATEPERONE
     Indication: Paranoia

REACTIONS (2)
  - Vomiting [Recovered/Resolved]
  - Off label use [Recovered/Resolved]

NARRATIVE: CASE EVENT DATE: 20210626
